FAERS Safety Report 11991435 (Version 1)
Quarter: 2016Q1

REPORT INFORMATION
  Report Type: Spontaneous
  Country: US (occurrence: US)
  Receive Date: 20160203
  Receipt Date: 20160203
  Transmission Date: 20160526
  Serious: No
  Sender: FDA-Public Use
  Company Number: US-JNJFOC-20160101298

PATIENT

DRUGS (1)
  1. HALDOL [Suspect]
     Active Substance: HALOPERIDOL
     Indication: SLEEP DISORDER THERAPY
     Route: 065

REACTIONS (3)
  - Product use issue [Unknown]
  - Hypoaesthesia [Unknown]
  - Off label use [Unknown]
